FAERS Safety Report 7323561-1 (Version None)
Quarter: 2011Q1

REPORT INFORMATION
  Report Type: 
  Country: None (occurrence: None)
  Receive Date: 20110301
  Receipt Date: 20110216
  Transmission Date: 20110831
  Serious: Yes (Death, Other)
  Sender: FDA-Public Use
  Company Number: CA-ELI_LILLY_AND_COMPANY-CA201102004275

PATIENT
  Sex: Female
  Weight: 115 kg

DRUGS (5)
  1. PRILOSEC [Concomitant]
  2. OXYBUTYNIN [Concomitant]
  3. ZYPREXA [Suspect]
     Indication: SCHIZOPHRENIA
     Dosage: UNK, UNK
     Dates: start: 20001121
  4. PAXIL [Concomitant]
  5. MINESTRIN [Concomitant]

REACTIONS (7)
  - OVERDOSE [None]
  - ARRHYTHMIA [None]
  - CARDIAC HYPERTROPHY [None]
  - MYOCARDIAL INFARCTION [None]
  - HYPERGLYCAEMIA [None]
  - DIABETES MELLITUS [None]
  - DEATH [None]
